FAERS Safety Report 19877207 (Version 1)
Quarter: 2021Q3

REPORT INFORMATION
  Report Type: Spontaneous
  Country: US (occurrence: US)
  Receive Date: 20210924
  Receipt Date: 20210924
  Transmission Date: 20211014
  Serious: No
  Sender: FDA-Public Use
  Company Number: US-LUNDBECK-DKLU3038867

PATIENT

DRUGS (2)
  1. CENOBAMATE. [Suspect]
     Active Substance: CENOBAMATE
     Indication: SEIZURE
     Dosage: INCREASING DOSES OF CENOBAMATE WERE ADMINISTERED (12.5, 25, 50, 100, 150, 200 MG/DAY)?BIWEEKLY; INCR
     Route: 065
  2. CLOBAZAM. [Suspect]
     Active Substance: CLOBAZAM
     Indication: SEIZURE
     Route: 065

REACTIONS (3)
  - Fatigue [Unknown]
  - Dysarthria [Unknown]
  - Somnolence [Unknown]
